FAERS Safety Report 8539480-9 (Version None)
Quarter: 2012Q3

REPORT INFORMATION
  Report Type: 
  Country: None (occurrence: None)
  Receive Date: 20120726
  Receipt Date: 20120719
  Transmission Date: 20120928
  Serious: Yes (Other)
  Sender: FDA-Public Use
  Company Number: DE-US-EMD SERONO, INC.-7148925

PATIENT
  Sex: Female

DRUGS (1)
  1. REBIF [Suspect]
     Indication: MULTIPLE SCLEROSIS
     Route: 058

REACTIONS (5)
  - PYELONEPHRITIS [None]
  - INJECTION SITE PAIN [None]
  - URINARY TRACT INFECTION [None]
  - INJECTION SITE REACTION [None]
  - INFLUENZA LIKE ILLNESS [None]
